FAERS Safety Report 7876742-2 (Version None)
Quarter: 2011Q4

REPORT INFORMATION
  Report Type: 
  Country: None (occurrence: None)
  Receive Date: 20111031
  Receipt Date: 20111020
  Transmission Date: 20120403
  Serious: Yes (Hospitalization, Other)
  Sender: FDA-Public Use
  Company Number: US-ROCHE-1006277

PATIENT
  Sex: Female

DRUGS (5)
  1. BONIVA [Suspect]
     Indication: PRODUCT USED FOR UNKNOWN INDICATION
     Route: 048
  2. RANITIDINE [Concomitant]
  3. LEVOTHYROXINE SODIUM [Concomitant]
  4. METFORMIN HCL [Concomitant]
  5. AMLODIPINE [Concomitant]

REACTIONS (6)
  - CHEST PAIN [None]
  - OESOPHAGITIS [None]
  - OESOPHAGEAL RUPTURE [None]
  - HAEMOTHORAX [None]
  - CHOLECYSTECTOMY [None]
  - OESOPHAGEAL STENOSIS [None]
